FAERS Safety Report 20659765 (Version 1)
Quarter: 2022Q1

REPORT INFORMATION
  Report Type: Spontaneous
  Country: CA (occurrence: CA)
  Receive Date: 20220331
  Receipt Date: 20220331
  Transmission Date: 20220423
  Serious: Yes (Hospitalization)
  Sender: FDA-Public Use
  Company Number: CA-JNJFOC-20220355648

PATIENT
  Age: 36 Year
  Sex: Female
  Weight: 120 kg

DRUGS (3)
  1. REMICADE [Suspect]
     Active Substance: INFLIXIMAB
     Indication: Polychondritis
     Route: 042
  2. PREDNISONE [Concomitant]
     Active Substance: PREDNISONE
  3. SULFASALAZINE [Concomitant]
     Active Substance: SULFASALAZINE

REACTIONS (4)
  - Gestational hypertension [Unknown]
  - Peripheral swelling [Unknown]
  - Maternal exposure during pregnancy [Unknown]
  - Off label use [Unknown]
